FAERS Safety Report 4678305-9 (Version None)
Quarter: 2005Q2

REPORT INFORMATION
  Report Type: 
  Country: None (occurrence: None)
  Receive Date: 20050601
  Receipt Date: 20050517
  Transmission Date: 20051028
  Serious: Yes (Other)
  Sender: FDA-Public Use
  Company Number: PHBS2005BE07083

PATIENT
  Age: 72 Year
  Sex: Female

DRUGS (10)
  1. AREDIA [Suspect]
     Dosage: 90 MG, QMO
     Route: 042
     Dates: start: 19970101, end: 20020821
  2. ZOMETA [Suspect]
     Indication: MULTIPLE MYELOMA
     Dosage: 4 MG, QMO
     Route: 042
     Dates: start: 20020906, end: 20050420
  3. VINCRISTINE + ADRIAMYCIN + DEXAMETHASONE [Concomitant]
     Route: 065
     Dates: start: 19970301, end: 19970601
  4. VUMON [Concomitant]
     Route: 065
     Dates: start: 19970701, end: 19971201
  5. ENDOXAN [Concomitant]
     Route: 065
     Dates: start: 19970701, end: 19971201
  6. CYCLOSPORINE [Suspect]
     Indication: STEM CELL TRANSPLANT
     Route: 065
     Dates: start: 20010301, end: 20011201
  7. NEORAL [Suspect]
     Indication: GRAFT VERSUS HOST DISEASE
     Route: 065
     Dates: start: 19220821, end: 20030307
  8. BONE MARROW TRANSPLANT [Concomitant]
     Dosage: STEM CELL COLLECTION
     Dates: start: 19971127
  9. BONE MARROW TRANSPLANT [Concomitant]
     Dosage: STEM CELL TRANSPLANT
     Dates: start: 19980210
  10. BONE MARROW TRANSPLANT [Concomitant]
     Dosage: MINI ALLOGENIC TRANSPLANT
     Dates: start: 20010306

REACTIONS (11)
  - ASEPTIC NECROSIS BONE [None]
  - EYE INFECTION TOXOPLASMAL [None]
  - GRAFT VERSUS HOST DISEASE [None]
  - HIP FRACTURE [None]
  - MALIGNANT NEOPLASM PROGRESSION [None]
  - OBLITERATIVE BRONCHIOLITIS [None]
  - OSTEONECROSIS [None]
  - PROSTHESIS IMPLANTATION [None]
  - STEM CELL TRANSPLANT [None]
  - THROMBOCYTOPENIA [None]
  - TOOTH EXTRACTION [None]
